FAERS Safety Report 9406924 (Version 2)
Quarter: 2013Q3

REPORT INFORMATION
  Report Type: Spontaneous
  Country: US (occurrence: US)
  Receive Date: 20130718
  Receipt Date: 20130729
  Transmission Date: 20140515
  Serious: No
  Sender: FDA-Public Use
  Company Number: US-PFIZER INC-2013207664

PATIENT
  Age: 75 Year
  Sex: Male
  Weight: 127 kg

DRUGS (3)
  1. NEURONTIN [Suspect]
     Dosage: UNK
  2. GABAPENTIN [Suspect]
     Indication: DIABETIC NEUROPATHY
     Dosage: UNK
  3. NOVOLIN 70/30 [Concomitant]
     Indication: DIABETES MELLITUS
     Dosage: 72UNITS IN THE MORNING AND 34UNITS AT NIGHT

REACTIONS (1)
  - Pain [Unknown]
